FAERS Safety Report 17500410 (Version 5)
Quarter: 2020Q3

REPORT INFORMATION
  Report Type: Spontaneous
  Country: ES (occurrence: ES)
  Receive Date: 20200305
  Receipt Date: 20200826
  Transmission Date: 20201102
  Serious: Yes (Hospitalization, Other)
  Sender: FDA-Public Use
  Company Number: ES-AUROBINDO-AUR-APL-2020-010120

PATIENT
  Age: 67 Year
  Sex: Female

DRUGS (1)
  1. OLMESARTAN FILM COATED TABLETS [Suspect]
     Active Substance: OLMESARTAN
     Indication: HYPERTENSION
     Dosage: UNK
     Route: 065

REACTIONS (13)
  - Anaemia [Unknown]
  - Eosinophil count [Recovered/Resolved]
  - Gastrointestinal disorder [Recovered/Resolved]
  - Sprue-like enteropathy [Recovered/Resolved]
  - Lymphocytic infiltration [Recovered/Resolved]
  - Coeliac disease [Recovered/Resolved]
  - Iron deficiency anaemia [Unknown]
  - Gastritis [Recovered/Resolved]
  - Intestinal villi atrophy [Recovered/Resolved]
  - Diarrhoea [Recovered/Resolved]
  - Gastritis erosive [Recovered/Resolved]
  - Enteritis [Recovered/Resolved]
  - Weight decreased [Unknown]
